FAERS Safety Report 7995255-0 (Version None)
Quarter: 2011Q4

REPORT INFORMATION
  Report Type: 
  Country: None (occurrence: None)
  Receive Date: 20111220
  Receipt Date: 20111220
  Transmission Date: 20120403
  Serious: Yes (Other)
  Sender: FDA-Public Use
  Company Number: None

PATIENT
  Age: 62 Year
  Sex: Male
  Weight: 83.914 kg

DRUGS (2)
  1. GABAPENTIN [Suspect]
     Indication: INSOMNIA
     Dosage: 1 TABLET
     Route: 048
     Dates: start: 20111207, end: 20111217
  2. GABAPENTIN [Suspect]
     Indication: BONE PAIN
     Dosage: 1 TABLET
     Route: 048
     Dates: start: 20111207, end: 20111217

REACTIONS (2)
  - PRODUCT SUBSTITUTION ISSUE [None]
  - DRUG INEFFECTIVE [None]
